FAERS Safety Report 4357498-7 (Version None)
Quarter: 2004Q2

REPORT INFORMATION
  Report Type: 
  Country: None (occurrence: None)
  Receive Date: 20040507
  Receipt Date: 20040326
  Transmission Date: 20050107
  Serious: Yes (Hospitalization)
  Sender: FDA-Public Use
  Company Number: 6008133

PATIENT
  Sex: 0

DRUGS (3)
  1. BISOPROLOL FUMARATE [Suspect]
     Dosage: TRANSPLACENTAL STOPPED (DURING ALL PREGNANCY)
     Route: 064
  2. NICARDIPINE HCL [Suspect]
     Dosage: TRANSPLACENTAL STOPPED (DURING ALL PREGNANCY)
  3. ASPEGIC 1000 [Concomitant]

REACTIONS (7)
  - BRADYCARDIA NEONATAL [None]
  - CAESAREAN SECTION [None]
  - COMPLICATIONS OF MATERNAL EXPOSURE TO THERAPEUTIC DRUGS [None]
  - MATERNAL DRUGS AFFECTING FOETUS [None]
  - NEONATAL APNOEIC ATTACK [None]
  - PREMATURE BABY [None]
  - SMALL FOR DATES BABY [None]
